FAERS Safety Report 8287152-0 (Version None)
Quarter: 2012Q2

REPORT INFORMATION
  Report Type: 
  Country: None (occurrence: None)
  Receive Date: 20120416
  Receipt Date: 20120410
  Transmission Date: 20120825
  Serious: No
  Sender: FDA-Public Use
  Company Number: US-PFIZER INC-2012089761

PATIENT
  Sex: Female
  Weight: 45.351 kg

DRUGS (3)
  1. EFFEXOR XR [Suspect]
     Indication: ANXIETY
  2. EFFEXOR XR [Suspect]
     Indication: POST-TRAUMATIC STRESS DISORDER
     Dosage: 150 MG, 1X/DAY
     Route: 048
     Dates: start: 20050101
  3. EFFEXOR XR [Suspect]
     Indication: MAJOR DEPRESSION

REACTIONS (3)
  - WITHDRAWAL SYNDROME [None]
  - PANIC ATTACK [None]
  - ACTIVITIES OF DAILY LIVING IMPAIRED [None]
